FAERS Safety Report 25866802 (Version 1)
Quarter: 2025Q4

REPORT INFORMATION
  Report Type: Spontaneous
  Country: EU (occurrence: EU)
  Receive Date: 20251001
  Receipt Date: 20251001
  Transmission Date: 20260117
  Serious: Yes (Hospitalization, Other)
  Sender: ACCORD
  Company Number: None

PATIENT
  Age: 74 Year
  Sex: Male
  Weight: 112 kg

DRUGS (8)
  1. CLOPIDOGREL [Suspect]
     Active Substance: CLOPIDOGREL BISULFATE
     Indication: Thrombosis prophylaxis
     Dosage: STRENGTH: 75 MG
     Dates: start: 20250729, end: 20250812
  2. AMLODIPINE [Concomitant]
     Active Substance: AMLODIPINE BESYLATE
     Indication: Angina pectoris
     Dates: start: 20230928
  3. ATORVASTATIN [Concomitant]
     Active Substance: ATORVASTATIN
     Indication: Hypercholesterolaemia
     Dates: start: 20250407
  4. EZETIMIBE [Concomitant]
     Active Substance: EZETIMIBE
     Indication: Hypercholesterolaemia
     Dates: start: 20220630
  5. ASPIRIN [Suspect]
     Active Substance: ASPIRIN
     Indication: Thrombosis prophylaxis
     Dosage: STRENGTH: 75 MG
     Dates: start: 20220630
  6. IMDUR [Concomitant]
     Active Substance: ISOSORBIDE MONONITRATE
     Indication: Cardiac disorder
     Dosage: STRENGTH: 30 MG
     Dates: start: 20240815
  7. GABAPENTIN [Concomitant]
     Active Substance: GABAPENTIN
     Indication: Pain
     Dosage: STRENGTH: 300 MG
     Dates: start: 2019
  8. METOPROLOL SUCCINATE [Concomitant]
     Active Substance: METOPROLOL SUCCINATE
     Indication: Hypertension
     Dosage: STRENGTH: 50 MG
     Dates: start: 20250728

REACTIONS (2)
  - Faeces discoloured [Unknown]
  - Gastric ulcer haemorrhage [Recovered/Resolved]

NARRATIVE: CASE EVENT DATE: 20250101
